FAERS Safety Report 9061761 (Version 1)
Quarter: 2013Q1

REPORT INFORMATION
  Report Type: Spontaneous
  Country: US (occurrence: None)
  Receive Date: 20130122
  Receipt Date: 20130122
  Transmission Date: 20140127
  Serious: Yes (Hospitalization)
  Sender: FDA-Public Use
  Company Number: UTC-027580

PATIENT
  Age: 58 Year
  Sex: Female
  Weight: 72.7 kg

DRUGS (3)
  1. REMODULIN (2.5 MILLIGRAM/MILLILITERS, INJECTION FOR INFUSION) (TREPROSTINIL SODIUM) [Suspect]
     Indication: PULMONARY ARTERIAL HYPERTENSION
     Dosage: 8.64 UG/KG (0.006 UG/KG , 1 IN 1 MIN), SUBCUTANEOUS
  2. ADCIRCA (TADALAFIL-) UNKNOWN [Concomitant]
  3. TRACLEER (ROSENTAN-) UNKNOWN [Concomitant]

REACTIONS (15)
  - Electrolyte imbalance [None]
  - Pain in extremity [None]
  - Pain in extremity [None]
  - Pain in extremity [None]
  - Nausea [None]
  - Peripheral coldness [None]
  - Pallor [None]
  - Muscular weakness [None]
  - Constipation [None]
  - Oedema peripheral [None]
  - Local swelling [None]
  - Decreased appetite [None]
  - Infusion site erythema [None]
  - Musculoskeletal stiffness [None]
  - Infusion site pain [None]
